FAERS Safety Report 14292405 (Version 1)
Quarter: 2017Q4

REPORT INFORMATION
  Report Type: Report from Study
  Country: US (occurrence: US)
  Receive Date: 20171215
  Receipt Date: 20171215
  Transmission Date: 20180321
  Serious: Yes (Hospitalization)
  Sender: FDA-Public Use
  Company Number: PHHY2017US185204

PATIENT
  Sex: Male

DRUGS (4)
  1. CLOZARIL [Suspect]
     Active Substance: CLOZAPINE
     Indication: PRODUCT USED FOR UNKNOWN INDICATION
     Dosage: 200 MG, QHS
     Route: 065
     Dates: start: 2017, end: 201711
  2. HALOPERIDOL. [Suspect]
     Active Substance: HALOPERIDOL
     Indication: PRODUCT USED FOR UNKNOWN INDICATION
     Dosage: 5 MG, TID
     Route: 065
     Dates: start: 2017, end: 201711
  3. CLOZARIL [Suspect]
     Active Substance: CLOZAPINE
     Dosage: 300 MG, QHS
     Route: 065
     Dates: start: 201711
  4. HALOPERIDOL. [Suspect]
     Active Substance: HALOPERIDOL
     Dosage: 10 MG, TID
     Route: 065
     Dates: start: 201711

REACTIONS (4)
  - Paranoia [Unknown]
  - Suicidal ideation [Unknown]
  - Diabetes mellitus inadequate control [Unknown]
  - Anxiety [Unknown]

NARRATIVE: CASE EVENT DATE: 2017
